FAERS Safety Report 9849972 (Version 1)
Quarter: 2014Q1

REPORT INFORMATION
  Report Type: Spontaneous
  Country: IT (occurrence: IT)
  Receive Date: 20140128
  Receipt Date: 20140128
  Transmission Date: 20141002
  Serious: Yes (Other)
  Sender: FDA-Public Use
  Company Number: IT-WATSON-2014-00742

PATIENT
  Age: 38 Year
  Sex: Male

DRUGS (2)
  1. LORAZEPAM (UNKNOWN) [Suspect]
     Indication: DRUG ABUSE
     Dosage: 20 MG, TOTAL
     Route: 048
     Dates: start: 20130912, end: 20130912
  2. LORAZEPAM (UNKNOWN) [Suspect]
     Indication: MOOD ALTERED

REACTIONS (2)
  - Drug abuse [Recovered/Resolved]
  - Gait disturbance [Recovered/Resolved]
